FAERS Safety Report 9068489 (Version 2)
Quarter: 2015Q1

REPORT INFORMATION
  Report Type: Report from Study
  Country: US (occurrence: US)
  Receive Date: 20130128
  Receipt Date: 20150209
  Transmission Date: 20150721
  Serious: Yes (Other)
  Sender: FDA-Public Use
  Company Number: US-ROCHE-1183454

PATIENT

DRUGS (4)
  1. BENDAMUSTINE [Suspect]
     Active Substance: BENDAMUSTINE
     Indication: NON-HODGKIN^S LYMPHOMA
     Dosage: DAY 1AND 2
     Route: 065
  2. RITUXIMAB [Suspect]
     Active Substance: RITUXIMAB
     Indication: NON-HODGKIN^S LYMPHOMA
     Route: 042
  3. BENDAMUSTINE [Suspect]
     Active Substance: BENDAMUSTINE
     Route: 065
  4. IBRUTINIB [Suspect]
     Active Substance: IBRUTINIB
     Indication: NON-HODGKIN^S LYMPHOMA
     Route: 065

REACTIONS (20)
  - Lymphopenia [Unknown]
  - Rash [Unknown]
  - Vomiting [Unknown]
  - Anaemia [Unknown]
  - Hypotension [Unknown]
  - Hypertension [Unknown]
  - Hypokalaemia [Unknown]
  - Hypophosphataemia [Unknown]
  - Febrile neutropenia [Unknown]
  - Pancreatitis [Unknown]
  - Nausea [Unknown]
  - Pyrexia [Unknown]
  - Thrombocytopenia [Unknown]
  - Hyperuricaemia [Unknown]
  - Fatigue [Unknown]
  - Neutropenia [Unknown]
  - Pneumonia [Unknown]
  - Hyponatraemia [Unknown]
  - Herpes zoster [Unknown]
  - Sepsis [Unknown]
